FAERS Safety Report 9342424 (Version 4)
Quarter: 2021Q2

REPORT INFORMATION
  Report Type: Spontaneous
  Country: ES (occurrence: ES)
  Receive Date: 20130611
  Receipt Date: 20210525
  Transmission Date: 20210717
  Serious: Yes (Other)
  Sender: FDA-Public Use
  Company Number: PHHY2013ES058682

PATIENT
  Age: 83 Year
  Sex: Male

DRUGS (3)
  1. ACENOCOUMAROL [Interacting]
     Active Substance: ACENOCOUMAROL
     Indication: ANTICOAGULANT THERAPY
  2. ACENOCOUMAROL [Interacting]
     Active Substance: ACENOCOUMAROL
     Indication: ATRIAL FIBRILLATION
     Dosage: UNK (IN THE AFTERNOON)
     Route: 065
  3. LOSARTAN POTASSIUM/HYDROCHLOROTHIAZIDE [Suspect]
     Active Substance: HYDROCHLOROTHIAZIDE\LOSARTAN POTASSIUM
     Indication: HYPERTENSION
     Dosage: UNK 100 MG, LOSARTAN PLUS 25 MG HYDROCHLOROTHIAZIDE IN THE MORNING
     Route: 065

REACTIONS (3)
  - Blood pressure systolic abnormal [Recovered/Resolved]
  - Drug interaction [Recovering/Resolving]
  - International normalised ratio fluctuation [Unknown]
